FAERS Safety Report 9797457 (Version 2)
Quarter: 2014Q1

REPORT INFORMATION
  Report Type: Report from Study
  Country: IQ (occurrence: IQ)
  Receive Date: 20140106
  Receipt Date: 20140106
  Transmission Date: 20141002
  Serious: Yes (Death, Hospitalization, Other)
  Sender: FDA-Public Use
  Company Number: PHHY2012IQ087843

PATIENT
  Age: 58 Year
  Sex: Male

DRUGS (6)
  1. GLIVEC [Suspect]
     Indication: CHRONIC MYELOID LEUKAEMIA
     Dosage: 400 MG, DAILY
     Route: 048
     Dates: start: 2008
  2. GLIVEC [Suspect]
     Dosage: 400 MG, (100X4 TABLETS/DAY)
     Route: 048
  3. GLIVEC [Suspect]
     Dosage: 400 MG, DAILY
     Route: 048
     Dates: start: 20130918, end: 20131116
  4. GLIVEC [Suspect]
     Dosage: 600 MG, DAILY
     Route: 048
     Dates: start: 20131116
  5. AMOXICILLIN [Concomitant]
     Dosage: 1 DF, Q12H
     Route: 048
     Dates: start: 20121020
  6. AMOXICILLIN [Concomitant]
     Dosage: 1 DF, Q12H
     Route: 048
     Dates: start: 20121216

REACTIONS (10)
  - Death [Fatal]
  - Leukocytosis [Not Recovered/Not Resolved]
  - Pyrexia [Recovering/Resolving]
  - Splenomegaly [Not Recovered/Not Resolved]
  - Arthralgia [Recovering/Resolving]
  - Anaemia [Not Recovered/Not Resolved]
  - Drug ineffective [Unknown]
  - Aphthous stomatitis [Recovering/Resolving]
  - Anxiety [Recovering/Resolving]
  - Influenza [Recovered/Resolved]
